FAERS Safety Report 4726061-8 (Version None)
Quarter: 2005Q3

REPORT INFORMATION
  Report Type: 
  Country: None (occurrence: None)
  Receive Date: 20050726
  Receipt Date: 20050726
  Transmission Date: 20060218
  Serious: Yes (Hospitalization)
  Sender: FDA-Public Use
  Company Number: None

PATIENT
  Age: 57 Year
  Sex: Male
  Weight: 68.9467 kg

DRUGS (10)
  1. HEPARIN [Suspect]
     Indication: THROMBOSIS PROPHYLAXIS
     Dosage: 10000 UNITS BID SUBCUTANEOUS
     Route: 058
     Dates: start: 20050502, end: 20050512
  2. LISINOPRIL [Suspect]
     Indication: HYPERTENSION
     Dosage: 20MG QD ORAL
     Route: 048
     Dates: start: 20050503, end: 20050512
  3. OMEPRAZOLE [Concomitant]
  4. REGLAN [Concomitant]
  5. METHOCARBAMOL [Concomitant]
  6. TORADOL [Concomitant]
  7. CIPROFLOXACIN [Concomitant]
  8. HYDROCHLOROTHIAZIDE [Concomitant]
  9. LISINOPRIL [Concomitant]
  10. VANCOMYCIN [Concomitant]

REACTIONS (1)
  - HYPERKALAEMIA [None]
